FAERS Safety Report 8444471-2 (Version None)
Quarter: 2012Q2

REPORT INFORMATION
  Report Type: 
  Country: None (occurrence: None)
  Receive Date: 20120618
  Receipt Date: 20120608
  Transmission Date: 20120825
  Serious: Yes (Hospitalization)
  Sender: FDA-Public Use
  Company Number: PH-PFIZER INC-2011026444

PATIENT
  Age: 24 Year
  Sex: Female
  Weight: 31.5 kg

DRUGS (1)
  1. AXITINIB [Suspect]
     Indication: METASTATIC RENAL CELL CARCINOMA
     Dosage: 5 MG, 2X/DAY
     Route: 048
     Dates: start: 20110106, end: 20110205

REACTIONS (2)
  - OESOPHAGITIS [None]
  - GASTRITIS [None]
